FAERS Safety Report 23357374 (Version 1)
Quarter: 2024Q1

REPORT INFORMATION
  Report Type: Report from Study
  Country: DE (occurrence: DE)
  Receive Date: 20240102
  Receipt Date: 20240102
  Transmission Date: 20240409
  Serious: Yes (Hospitalization)
  Sender: FDA-Public Use
  Company Number: DE-ROCHE-3469518

PATIENT
  Age: 76 Year
  Sex: Female

DRUGS (2)
  1. BENDAMUSTINE HYDROCHLORIDE [Suspect]
     Active Substance: BENDAMUSTINE HYDROCHLORIDE
     Indication: Follicular lymphoma
     Dosage: 90 MILLIGRAM/SQ. METER
     Route: 042
     Dates: start: 20230418, end: 20230516
  2. OBINUTUZUMAB [Suspect]
     Active Substance: OBINUTUZUMAB
     Indication: Follicular lymphoma
     Dosage: 1000 MILLIGRAM
     Route: 042
     Dates: start: 20230418, end: 20230516

REACTIONS (10)
  - Hypomagnesaemia [Unknown]
  - Hyperuricaemia [Unknown]
  - Constipation [Unknown]
  - Hypokalaemia [Unknown]
  - Neutropenia [Unknown]
  - Febrile infection [Unknown]
  - Nausea [Unknown]
  - Decreased appetite [Unknown]
  - Urinary tract infection [Recovered/Resolved]
  - Infection [Recovered/Resolved]

NARRATIVE: CASE EVENT DATE: 20230520
